FAERS Safety Report 9341144 (Version 1)
Quarter: 2013Q2

REPORT INFORMATION
  Report Type: Spontaneous
  Country: US (occurrence: US)
  Receive Date: 20130611
  Receipt Date: 20130611
  Transmission Date: 20140414
  Serious: Yes (Hospitalization)
  Sender: FDA-Public Use
  Company Number: US-PAR PHARMACEUTICAL, INC-2013SCPR005953

PATIENT
  Sex: 0

DRUGS (1)
  1. BUPROPION HCL SR TABLETS [Suspect]
     Indication: PRODUCT USED FOR UNKNOWN INDICATION
     Dosage: 300 MG TABLETS, UNKNOWN
     Route: 045

REACTIONS (3)
  - Serotonin syndrome [Unknown]
  - Convulsion [Unknown]
  - Drug abuse [Unknown]
